FAERS Safety Report 4469738-4 (Version None)
Quarter: 2004Q3

REPORT INFORMATION
  Report Type: 
  Country: None (occurrence: None)
  Receive Date: 20040917
  Receipt Date: 20040616
  Transmission Date: 20050211
  Serious: Yes (Disabling)
  Sender: FDA-Public Use
  Company Number: PHEH2004US02056

PATIENT
  Age: 61 Year
  Sex: Female

DRUGS (14)
  1. FEMARA [Suspect]
     Indication: BREAST CANCER
     Dosage: 2.5 MG, QD, ORAL
     Route: 048
     Dates: start: 20031223, end: 20040201
  2. DARVOCET (DEXTROPROPOXYPHENE NAPSILATE0 [Concomitant]
  3. CELEBREX [Concomitant]
  4. EFFEXOR [Concomitant]
  5. LEXAPRO [Concomitant]
  6. COZAAR [Concomitant]
  7. ASPIRIN [Concomitant]
  8. TRAMADOL HCL [Concomitant]
  9. SOTALOL HCL [Concomitant]
  10. EMAGEL (POLYGELINE) [Concomitant]
  11. TENORMIN [Concomitant]
  12. ULTRAN (PHENAGLYCODOL) [Concomitant]
  13. ATIVAN [Concomitant]
  14. MAXAIR [Concomitant]

REACTIONS (7)
  - ARTHRALGIA [None]
  - DEPRESSION [None]
  - FATIGUE [None]
  - HEADACHE [None]
  - IMMOBILE [None]
  - RASH [None]
  - VOMITING [None]
